FAERS Safety Report 8353043-X (Version None)
Quarter: 2012Q2

REPORT INFORMATION
  Report Type: 
  Country: None (occurrence: None)
  Receive Date: 20120511
  Receipt Date: 20120508
  Transmission Date: 20120825
  Serious: Yes (Death, Hospitalization, Other)
  Sender: FDA-Public Use
  Company Number: US-ASTRAZENECA-2006UW21747

PATIENT
  Age: 48 Year
  Sex: Female
  Weight: 108.9 kg

DRUGS (11)
  1. LYRICA [Concomitant]
     Route: 048
     Dates: start: 20040130
  2. NEXIUM [Suspect]
     Route: 048
     Dates: start: 20050820
  3. CRESTOR [Suspect]
     Route: 048
  4. AMARYL [Concomitant]
     Route: 048
     Dates: start: 20021022
  5. AMBIEN [Concomitant]
     Route: 048
     Dates: start: 20050710
  6. SEROQUEL [Suspect]
     Indication: DEPRESSION
     Route: 048
     Dates: start: 20041216
  7. VYTORIN [Concomitant]
     Dosage: 10MG/40MG
     Route: 048
     Dates: start: 20061017
  8. SEROQUEL [Suspect]
     Route: 048
     Dates: end: 20060101
  9. ZOCOR [Concomitant]
     Route: 048
     Dates: start: 20040804
  10. PAXIL [Concomitant]
     Route: 048
     Dates: start: 20020124
  11. ACTOS PLUS METFORMIN [Concomitant]
     Dosage: 15MG/500MG
     Route: 048
     Dates: start: 20050820

REACTIONS (8)
  - CARDIOMEGALY [None]
  - DIABETIC RETINOPATHY [None]
  - CONVULSION [None]
  - SYNCOPE [None]
  - TEMPORAL LOBE EPILEPSY [None]
  - DIABETIC NEUROPATHY [None]
  - TYPE 2 DIABETES MELLITUS [None]
  - MYOCARDIAL INFARCTION [None]
